FAERS Safety Report 4685791-7 (Version None)
Quarter: 2005Q2

REPORT INFORMATION
  Report Type: 
  Country: None (occurrence: None)
  Receive Date: 20050607
  Receipt Date: 20050607
  Transmission Date: 20051028
  Serious: Yes (Other)
  Sender: FDA-Public Use
  Company Number: None

PATIENT
  Sex: Male

DRUGS (1)
  1. TNKASE [Suspect]
     Indication: CEREBROVASCULAR ACCIDENT
     Dosage: 4 MG INTRA-ARTERIAL
     Route: 013
     Dates: start: 20050427

REACTIONS (2)
  - HAEMORRHAGIC STROKE [None]
  - THROMBOLYSIS [None]
